FAERS Safety Report 4537827-1 (Version None)
Quarter: 2004Q4

REPORT INFORMATION
  Report Type: 
  Country: None (occurrence: None)
  Receive Date: 20041224
  Receipt Date: 20041104
  Transmission Date: 20050328
  Serious: Yes (Other)
  Sender: FDA-Public Use
  Company Number: BE-MERCK-0411BEL00017

PATIENT
  Age: 54 Year
  Sex: Male
  Weight: 75 kg

DRUGS (3)
  1. ZETIA [Suspect]
     Indication: HYPERCHOLESTEROLAEMIA
     Route: 048
     Dates: start: 20040101, end: 20041023
  2. VENLAFAXINE HYDROCHLORIDE [Concomitant]
     Indication: DEPRESSION
     Route: 048
     Dates: start: 20040313
  3. ATORVASTATIN CALCIUM [Concomitant]
     Indication: HYPERCHOLESTEROLAEMIA
     Route: 048
     Dates: start: 19950414

REACTIONS (1)
  - HEPATIC ENZYME INCREASED [None]
